FAERS Safety Report 12276401 (Version 2)
Quarter: 2016Q2

REPORT INFORMATION
  Report Type: Spontaneous
  Country: US (occurrence: US)
  Receive Date: 20160418
  Receipt Date: 20160420
  Transmission Date: 20160815
  Serious: Yes (Hospitalization, Other)
  Sender: FDA-Public Use
  Company Number: US-JNJFOC-20160404739

PATIENT
  Sex: Male

DRUGS (6)
  1. DURAGESIC [Suspect]
     Active Substance: FENTANYL
     Indication: HEAD INJURY
     Route: 062
  2. FENTANYL APOTEX [Suspect]
     Active Substance: FENTANYL
     Indication: HEAD INJURY
     Route: 062
  3. DURAGESIC [Suspect]
     Active Substance: FENTANYL
     Indication: HEAD INJURY
     Route: 062
     Dates: start: 1995
  4. FENTANYL MYLAN [Suspect]
     Active Substance: FENTANYL
     Indication: HEAD INJURY
     Route: 062
  5. UNSPECIFIED GENERIC FENTANYL [Suspect]
     Active Substance: FENTANYL
     Indication: DEPRESSION
     Route: 062
  6. UNSPECIFIED GENERIC FENTANYL [Suspect]
     Active Substance: FENTANYL
     Indication: HEAD INJURY
     Route: 062

REACTIONS (8)
  - Product quality issue [Unknown]
  - Heart rate decreased [Recovered/Resolved]
  - Inappropriate schedule of drug administration [Unknown]
  - Product use issue [Unknown]
  - Therapeutic response unexpected [Unknown]
  - Off label use [Unknown]
  - Wrong technique in product usage process [Unknown]
  - Mental impairment [Not Recovered/Not Resolved]
